FAERS Safety Report 18871426 (Version 1)
Quarter: 2021Q1

REPORT INFORMATION
  Report Type: Spontaneous
  Country: US (occurrence: US)
  Receive Date: 20210210
  Receipt Date: 20210210
  Transmission Date: 20210420
  Serious: No
  Sender: FDA-Public Use
  Company Number: US-BAYER-2021-059645

PATIENT
  Age: 74 Year
  Sex: Female
  Weight: 74.84 kg

DRUGS (2)
  1. CIPRO [Suspect]
     Active Substance: CIPROFLOXACIN HYDROCHLORIDE
  2. PREDNISONE. [Suspect]
     Active Substance: PREDNISONE

REACTIONS (2)
  - Lip swelling [None]
  - Burning sensation [None]
